FAERS Safety Report 15052822 (Version 1)
Quarter: 2018Q2

REPORT INFORMATION
  Report Type: Spontaneous
  Country: BY (occurrence: US)
  Receive Date: 20180622
  Receipt Date: 20180622
  Transmission Date: 20180711
  Serious: Yes (Disabling)
  Sender: FDA-Public Use
  Company Number: BY-BAYER-2018-112647

PATIENT
  Age: 42 Year
  Sex: Male
  Weight: 60 kg

DRUGS (16)
  1. ZOPICLONE [Concomitant]
     Active Substance: ZOPICLONE
     Dosage: UNK
     Dates: start: 20170928
  2. PYRIDOXAL [Concomitant]
     Active Substance: PYRIDOXAL
     Dosage: UNK
     Dates: start: 20170928
  3. OMEPRAZOLE. [Concomitant]
     Active Substance: OMEPRAZOLE
     Dosage: UNK
     Dates: start: 20170928
  4. EFAVIRENZ. [Concomitant]
     Active Substance: EFAVIRENZ
     Dosage: UNK
     Dates: start: 20170928
  5. CLOFAZIMINE [Concomitant]
     Active Substance: CLOFAZIMINE
     Dosage: 100 MG, UNK
     Route: 048
  6. LINEZOLID. [Concomitant]
     Active Substance: LINEZOLID
     Dosage: 600 MG, QD
     Route: 048
     Dates: start: 20170928
  7. ONDANSETRON [Concomitant]
     Active Substance: ONDANSETRON
  8. AMIKACIN. [Concomitant]
     Active Substance: AMIKACIN
     Dosage: 1000 MG, QD
     Dates: start: 20170928, end: 20171220
  9. EMTRICITABINE W/TENOFOVIR DISOPROXIL FUMARATE [Concomitant]
     Active Substance: EMTRICITABINE\TENOFOVIR DISOPROXIL
  10. CALCIUM GLUCONATE. [Concomitant]
     Active Substance: CALCIUM GLUCONATE
  11. FLUCONAZOLE. [Concomitant]
     Active Substance: FLUCONAZOLE
  12. MOXIFLOXACIN ORAL [Suspect]
     Active Substance: MOXIFLOXACIN
     Dosage: 400 MG, QD
     Route: 048
     Dates: start: 20170928
  13. MOTILIUM [Concomitant]
     Active Substance: DOMPERIDONE
  14. CHLORPROTHIXENE [Concomitant]
     Active Substance: CHLORPROTHIXENE
     Dosage: UNK
     Dates: start: 20170928
  15. CLOFAZIMINE [Concomitant]
     Active Substance: CLOFAZIMINE
     Dosage: 200 MG, QD
     Route: 048
     Dates: start: 20170928
  16. PANCREATIN [Concomitant]
     Active Substance: PANCRELIPASE

REACTIONS (1)
  - Hypoacusis [None]

NARRATIVE: CASE EVENT DATE: 20171024
